FAERS Safety Report 20900445 (Version 1)
Quarter: 2022Q2

REPORT INFORMATION
  Report Type: Spontaneous
  Country: US (occurrence: None)
  Receive Date: 20220531
  Receipt Date: 20220531
  Transmission Date: 20220721
  Serious: Yes (Hospitalization, Other)
  Sender: FDA-Public Use
  Company Number: None

PATIENT
  Age: 30 Year
  Sex: Female
  Weight: 114.3 kg

DRUGS (1)
  1. VENOFER [Suspect]
     Active Substance: IRON SUCROSE
     Indication: Anaemia
     Dates: start: 20220408, end: 20220408

REACTIONS (5)
  - Hypersensitivity [None]
  - Urticaria [None]
  - Chest pain [None]
  - Abdominal pain upper [None]
  - Syncope [None]

NARRATIVE: CASE EVENT DATE: 20220408
